FAERS Safety Report 8822442 (Version 1)
Quarter: 2012Q4

REPORT INFORMATION
  Report Type: 
  Country: CA (occurrence: CA)
  Receive Date: 20121003
  Receipt Date: 20121003
  Transmission Date: 20130627
  Serious: Yes (Hospitalization, Other)
  Sender: FDA-Public Use
  Company Number: CA-ELI_LILLY_AND_COMPANY-CA201209006679

PATIENT
  Sex: Female

DRUGS (2)
  1. PEMETREXED [Suspect]
     Dosage: UNK, unknown
     Route: 065
  2. CISPLATIN [Concomitant]
     Dosage: UNK, unknown
     Route: 065

REACTIONS (4)
  - Convulsion [Unknown]
  - Hyponatraemia [Unknown]
  - Nausea [Unknown]
  - Vomiting [Unknown]
